FAERS Safety Report 10205715 (Version 1)
Quarter: 2014Q2

REPORT INFORMATION
  Report Type: Spontaneous
  Country: CN (occurrence: CN)
  Receive Date: 20140530
  Receipt Date: 20140530
  Transmission Date: 20141212
  Serious: Yes (Other)
  Sender: FDA-Public Use
  Company Number: CN-ROCHE-1409948

PATIENT
  Sex: Male
  Weight: 57 kg

DRUGS (3)
  1. ROCEPHIN [Suspect]
     Indication: BRONCHITIS
     Route: 041
     Dates: start: 20130721, end: 20130726
  2. RIBAVIRIN [Suspect]
     Indication: BRONCHITIS
     Route: 041
     Dates: start: 20130727, end: 20130731
  3. CEFUROXIME SODIUM [Suspect]
     Indication: BRONCHITIS
     Route: 041
     Dates: start: 20130727, end: 20130731

REACTIONS (1)
  - Hepatic function abnormal [Recovering/Resolving]
